FAERS Safety Report 5078297-7 (Version None)
Quarter: 2006Q3

REPORT INFORMATION
  Report Type: 
  Country: None (occurrence: None)
  Receive Date: 20060811
  Receipt Date: 20060704
  Transmission Date: 20061208
  Serious: Yes (Other)
  Sender: FDA-Public Use
  Company Number: PT-MERCK-0607PRT00005

PATIENT
  Age: 46 Year
  Sex: Male
  Weight: 113 kg

DRUGS (6)
  1. SINGULAIR [Suspect]
     Indication: RHINITIS
     Route: 048
     Dates: start: 20060516, end: 20060519
  2. SINGULAIR [Suspect]
     Indication: ASTHMA
     Route: 048
     Dates: start: 20060516, end: 20060519
  3. COZAAR [Suspect]
     Route: 048
  4. CARVEDILOL [Concomitant]
     Route: 048
  5. DESLORATADINE [Concomitant]
     Route: 065
  6. MOMETASONE FUROATE [Concomitant]
     Route: 065

REACTIONS (1)
  - ACUTE FEBRILE NEUTROPHILIC DERMATOSIS [None]
